FAERS Safety Report 5924067-4 (Version None)
Quarter: 2008Q3

REPORT INFORMATION
  Report Type: 
  Country: None (occurrence: None)
  Receive Date: 20080909
  Receipt Date: 20080201
  Transmission Date: 20090109
  Serious: Yes (Death)
  Sender: FDA-Public Use
  Company Number: 163-20785-08020165

PATIENT
  Age: 52 Year
  Sex: Male

DRUGS (3)
  1. THALOMID [Suspect]
     Indication: PANCREATIC CARCINOMA
     Dosage: 600 MG, DAILY, ORAL ; 200 MG, DAILY, ORAL ; 400 MG, DAILY, ORAL
     Route: 048
     Dates: start: 20050902, end: 20070301
  2. THALOMID [Suspect]
     Indication: PANCREATIC CARCINOMA
     Dosage: 600 MG, DAILY, ORAL ; 200 MG, DAILY, ORAL ; 400 MG, DAILY, ORAL
     Route: 048
     Dates: start: 20040603
  3. THALOMID [Suspect]
     Indication: PANCREATIC CARCINOMA
     Dosage: 600 MG, DAILY, ORAL ; 200 MG, DAILY, ORAL ; 400 MG, DAILY, ORAL
     Route: 048
     Dates: start: 20070801

REACTIONS (1)
  - DEATH [None]
